FAERS Safety Report 8765921 (Version 6)
Quarter: 2013Q1

REPORT INFORMATION
  Report Type: Spontaneous
  Country: US (occurrence: US)
  Receive Date: 20120904
  Receipt Date: 20130131
  Transmission Date: 20140127
  Serious: Yes (Hospitalization, Other)
  Sender: FDA-Public Use
  Company Number: US-009507513-1208USA012644

PATIENT
  Sex: Female
  Weight: 72.56 kg

DRUGS (2)
  1. NUVARING [Suspect]
     Indication: CONTRACEPTION
     Dosage: USE X 3 WEEKS, REMOVE X 1 WEEK
     Route: 067
     Dates: start: 2004, end: 200709
  2. NUVARING [Suspect]
     Dosage: USE X 4 WEEKS, THEN INSERT A NEW ONE
     Route: 067
     Dates: start: 200709, end: 20090909

REACTIONS (23)
  - Simple partial seizures [Recovered/Resolved]
  - Intracranial venous sinus thrombosis [Recovered/Resolved]
  - Subarachnoid haemorrhage [Unknown]
  - Cerebral infarction [Unknown]
  - Cerebral ischaemia [Unknown]
  - Depression [Not Recovered/Not Resolved]
  - Paraesthesia [Unknown]
  - Metrorrhagia [Unknown]
  - Papilloma viral infection [Recovered/Resolved]
  - Vomiting [Recovered/Resolved]
  - Nausea [Recovered/Resolved]
  - Back pain [Unknown]
  - Neck pain [Unknown]
  - Depression [Unknown]
  - Fatigue [Unknown]
  - Myofascial pain syndrome [Unknown]
  - Metrorrhagia [Not Recovered/Not Resolved]
  - Cervicitis [Not Recovered/Not Resolved]
  - Gardnerella test positive [Unknown]
  - Rosacea [Unknown]
  - Impetigo [Unknown]
  - Colposcopy [Recovered/Resolved]
  - Incorrect drug administration duration [Unknown]
